FAERS Safety Report 5487068-9 (Version None)
Quarter: 2007Q3

REPORT INFORMATION
  Report Type: 
  Country: None (occurrence: None)
  Receive Date: 20070925
  Receipt Date: 20070808
  Transmission Date: 20080115
  Serious: No
  Sender: FDA-Public Use
  Company Number: 2007US001574

PATIENT
  Sex: Male
  Weight: 113.4 kg

DRUGS (10)
  1. VESICARE [Suspect]
     Indication: HYPERTONIC BLADDER
     Dosage: 5 MG, UID/QD, ORAL
     Route: 048
     Dates: start: 20070619
  2. DETROL [Suspect]
     Indication: DRUG USE FOR UNKNOWN INDICATION
     Dates: start: 20070301, end: 20070610
  3. NEXIUM [Concomitant]
  4. COREG [Concomitant]
  5. ACTOS [Concomitant]
  6. FLOMAX [Concomitant]
  7. ASPIRIN [Concomitant]
  8. PROSCAR [Concomitant]
  9. VYTORIN [Concomitant]
  10. ALLOPURINOL [Concomitant]

REACTIONS (1)
  - DRY MOUTH [None]
